FAERS Safety Report 13394309 (Version 1)
Quarter: 2017Q2

REPORT INFORMATION
  Report Type: Spontaneous
  Country: SE (occurrence: SE)
  Receive Date: 20170402
  Receipt Date: 20170402
  Transmission Date: 20170830
  Serious: Yes (Hospitalization)
  Sender: FDA-Public Use
  Company Number: SE-MYLANLABS-2017M1019868

PATIENT

DRUGS (4)
  1. DESLORATADIN MYLAN 5 MG FILMDRAGERADE TABLETTER [Suspect]
     Active Substance: DESLORATADINE
     Indication: SEASONAL ALLERGY
     Dosage: UNK
     Dates: start: 20170316, end: 20170316
  2. CIRCADIN [Concomitant]
     Active Substance: MELATONIN
     Dosage: UNK
  3. DESOGESTREL ORIFARM [Concomitant]
     Dosage: UNK
  4. CONCERTA [Concomitant]
     Active Substance: METHYLPHENIDATE HYDROCHLORIDE
     Dosage: UNK

REACTIONS (5)
  - Pharyngeal oedema [Recovered/Resolved with Sequelae]
  - Ear swelling [Recovered/Resolved with Sequelae]
  - Rash [Recovered/Resolved with Sequelae]
  - Swelling face [Recovered/Resolved with Sequelae]
  - Pruritus [Recovered/Resolved with Sequelae]

NARRATIVE: CASE EVENT DATE: 20170316
